FAERS Safety Report 6804892-8 (Version None)
Quarter: 2010Q2

REPORT INFORMATION
  Report Type: 
  Country: None (occurrence: None)
  Receive Date: 20100628
  Receipt Date: 20100621
  Transmission Date: 20101027
  Serious: Yes (Death)
  Sender: FDA-Public Use
  Company Number: AU-ROCHE-710767

PATIENT
  Sex: Male
  Weight: 57 kg

DRUGS (9)
  1. MYCOPHENOLATE MOFETIL [Suspect]
     Indication: VASCULITIS
     Route: 065
     Dates: start: 20100610
  2. PREDNISOLONE [Concomitant]
     Dates: start: 20100609
  3. FRUSEMIDE [Concomitant]
     Dates: start: 20100608
  4. METOPROLOL [Concomitant]
  5. PANTOPRAZOLE [Concomitant]
     Dates: start: 20100608
  6. PERINDOPRIL [Concomitant]
  7. SULFAMETHOXAZOLE AND TRIMETHOPRIM [Concomitant]
     Dosage: DOSE: 400/80 MG DAILY
     Dates: start: 20100609
  8. AMOXICILLIN AND CLAVULANATE POTASSIUM [Concomitant]
     Dosage: DOSE: 500/125
     Dates: start: 20100611
  9. ROXITHROMYCIN [Concomitant]
     Dates: start: 20100607

REACTIONS (1)
  - CARDIO-RESPIRATORY ARREST [None]
